FAERS Safety Report 4596745-3 (Version None)
Quarter: 2005Q1

REPORT INFORMATION
  Report Type: 
  Country: None (occurrence: None)
  Receive Date: 20050302
  Receipt Date: 20050124
  Transmission Date: 20050727
  Serious: Yes (Other)
  Sender: FDA-Public Use
  Company Number: DE-GLAXOSMITHKLINE-D0045758A

PATIENT
  Age: 53 Year
  Sex: Female

DRUGS (2)
  1. ZANTAC [Suspect]
     Dosage: 5ML UNKNOWN
     Route: 042
  2. CALCIUM CHLORIDE [Concomitant]
     Route: 042

REACTIONS (5)
  - GASTROINTESTINAL PAIN [None]
  - HYPERSENSITIVITY [None]
  - NAUSEA [None]
  - PHARMACEUTICAL PRODUCT COMPLAINT [None]
  - SUBILEUS [None]
